FAERS Safety Report 15122607 (Version 1)
Quarter: 2018Q3

REPORT INFORMATION
  Report Type: Spontaneous
  Country: US (occurrence: US)
  Receive Date: 20180709
  Receipt Date: 20180709
  Transmission Date: 20181010
  Serious: Yes (Life-Threatening)
  Sender: FDA-Public Use
  Company Number: US-ALVA-AMCO PHARMACAL COMPANIES, INC.-2051593

PATIENT
  Sex: Female

DRUGS (1)
  1. NAUZENE (TRISODIUM CITRATE DIHYDRATE) [Suspect]
     Active Substance: TRISODIUM CITRATE DIHYDRATE
     Indication: NAUSEA
     Route: 048
     Dates: start: 20180622, end: 20180622

REACTIONS (2)
  - Seizure [Recovered/Resolved]
  - Hypoaesthesia [Recovered/Resolved]

NARRATIVE: CASE EVENT DATE: 20180622
